FAERS Safety Report 10801443 (Version 2)
Quarter: 2015Q1

REPORT INFORMATION
  Report Type: Spontaneous
  Country: US (occurrence: US)
  Receive Date: 20150217
  Receipt Date: 20150306
  Transmission Date: 20150721
  Serious: Yes (Hospitalization, Other)
  Sender: FDA-Public Use
  Company Number: US-AMGEN-USASP2015013318

PATIENT
  Age: 82 Year
  Sex: Female
  Weight: 79.3 kg

DRUGS (4)
  1. NEXIUM [Concomitant]
     Active Substance: ESOMEPRAZOLE MAGNESIUM
     Dosage: 40 MG, QD
     Route: 048
  2. AROMASIN [Concomitant]
     Active Substance: EXEMESTANE
     Dosage: UNK
  3. AMLODIPINE [Concomitant]
     Active Substance: AMLODIPINE BESYLATE
     Dosage: 10 MG, QD
     Route: 048
  4. PROLIA [Suspect]
     Active Substance: DENOSUMAB
     Indication: BREAST CANCER
     Dosage: 60 MG, Q6MO
     Route: 058
     Dates: start: 20140617, end: 20150206

REACTIONS (13)
  - Blood triglycerides increased [Unknown]
  - Adverse drug reaction [Unknown]
  - Syncope [Recovered/Resolved]
  - Abdominal discomfort [Unknown]
  - Tremor [Recovered/Resolved]
  - Abdominal pain upper [Unknown]
  - Blood pressure increased [Unknown]
  - Hyperglycaemia [Unknown]
  - Nausea [Recovered/Resolved]
  - Disturbance in attention [Unknown]
  - Dizziness [Unknown]
  - Headache [Recovered/Resolved]
  - Chest pain [Recovered/Resolved]

NARRATIVE: CASE EVENT DATE: 20150206
